FAERS Safety Report 5965209-4 (Version None)
Quarter: 2008Q4

REPORT INFORMATION
  Report Type: 
  Country: None (occurrence: None)
  Receive Date: 20081119
  Receipt Date: 20081027
  Transmission Date: 20090506
  Serious: Yes (Other)
  Sender: FDA-Public Use
  Company Number: 2008S1019425

PATIENT
  Age: 18 Year
  Sex: Female

DRUGS (3)
  1. CARBAMAZEPINE [Suspect]
     Indication: PARTIAL SEIZURES
     Dosage: 1000 MG; 4 TIMES A DAY
  2. TOPIRAMATE [Suspect]
     Indication: PARTIAL SEIZURES
     Dosage: 400 MG; 4 TIMES A DAY
  3. VALPROATE SODIUM [Suspect]
     Indication: PARTIAL SEIZURES

REACTIONS (3)
  - DRUG EXPOSURE DURING PREGNANCY [None]
  - DRUG INEFFECTIVE [None]
  - GRAND MAL CONVULSION [None]
